FAERS Safety Report 12957553 (Version 1)
Quarter: 2016Q4

REPORT INFORMATION
  Report Type: Spontaneous
  Country: FR (occurrence: FR)
  Receive Date: 20161118
  Receipt Date: 20161118
  Transmission Date: 20170207
  Serious: Yes (Hospitalization, Other)
  Sender: FDA-Public Use
  Company Number: FR-BRISTOL-MYERS SQUIBB COMPANY-BMS-2016-097480

PATIENT
  Age: 71 Year
  Sex: Male

DRUGS (4)
  1. OPDIVO [Suspect]
     Active Substance: NIVOLUMAB
     Indication: PRODUCT USED FOR UNKNOWN INDICATION
     Dosage: 183 MG, QD
     Route: 042
     Dates: start: 20160523
  2. OPDIVO [Suspect]
     Active Substance: NIVOLUMAB
     Indication: BRONCHIAL CARCINOMA
     Dosage: 183 MG, QD
     Route: 042
     Dates: start: 20160404
  3. OPDIVO [Suspect]
     Active Substance: NIVOLUMAB
     Indication: PRODUCT USED FOR UNKNOWN INDICATION
     Dosage: 183 MG, QD
     Route: 042
     Dates: start: 20160502
  4. OPDIVO [Suspect]
     Active Substance: NIVOLUMAB
     Indication: PRODUCT USED FOR UNKNOWN INDICATION
     Dosage: 183 MG, QD
     Route: 042
     Dates: start: 20160418

REACTIONS (7)
  - General physical health deterioration [Unknown]
  - Diarrhoea [Recovered/Resolved]
  - Hypokalaemia [Unknown]
  - Eating disorder [Unknown]
  - Dysphagia [Unknown]
  - Gastrointestinal tube insertion [Unknown]
  - Malnutrition [Unknown]

NARRATIVE: CASE EVENT DATE: 20160523
